FAERS Safety Report 16406194 (Version 1)
Quarter: 2019Q2

REPORT INFORMATION
  Report Type: Spontaneous
  Country: US (occurrence: US)
  Receive Date: 20190607
  Receipt Date: 20190607
  Transmission Date: 20190711
  Serious: No
  Sender: FDA-Public Use
  Company Number: US-ALLERGAN-1842946US

PATIENT
  Sex: Female

DRUGS (4)
  1. VIBERZI [Suspect]
     Active Substance: ELUXADOLINE
     Dosage: ACTUAL: 75MG CUTTING IN HALF (ONE IN THE MORNING AND ONE AT NIGHT)
     Route: 048
     Dates: start: 20180805
  2. VIBERZI [Suspect]
     Active Substance: ELUXADOLINE
     Dosage: ACTUAL: 75 MG (1 FULL AT LUNCHTIME)
     Route: 048
     Dates: start: 2018
  3. VIBERZI [Suspect]
     Active Substance: ELUXADOLINE
     Indication: IRRITABLE BOWEL SYNDROME
     Dosage: 75 MG, BID
  4. OMEPRAZOLE. [Concomitant]
     Active Substance: OMEPRAZOLE
     Indication: BARRETT^S OESOPHAGUS
     Dosage: 20 MG
     Route: 048

REACTIONS (3)
  - Wrong technique in product usage process [Unknown]
  - Incorrect dose administered [Unknown]
  - Diarrhoea [Not Recovered/Not Resolved]

NARRATIVE: CASE EVENT DATE: 2019
